FAERS Safety Report 15841912 (Version 2)
Quarter: 2019Q1

REPORT INFORMATION
  Report Type: Report from Study
  Country: PH (occurrence: PH)
  Receive Date: 20190118
  Receipt Date: 20190204
  Transmission Date: 20190417
  Serious: Yes (Death, Hospitalization)
  Sender: FDA-Public Use
  Company Number: PHHY2019PH009907

PATIENT
  Age: 52 Year
  Sex: Male

DRUGS (3)
  1. GLIVEC [Suspect]
     Active Substance: IMATINIB MESYLATE
     Dosage: 800 MG, UNK
     Route: 065
  2. GLIVEC [Suspect]
     Active Substance: IMATINIB MESYLATE
     Dosage: 400 MG, QD
     Route: 065
  3. GLIVEC [Suspect]
     Active Substance: IMATINIB MESYLATE
     Indication: GASTROINTESTINAL STROMAL TUMOUR
     Dosage: 100 MG, QID
     Route: 048
     Dates: start: 20170929

REACTIONS (7)
  - Sepsis [Fatal]
  - Malignant neoplasm progression [Unknown]
  - Back pain [Unknown]
  - Gastrointestinal stromal tumour [Unknown]
  - Decreased appetite [Recovering/Resolving]
  - Vomiting [Fatal]
  - Pain [Recovering/Resolving]

NARRATIVE: CASE EVENT DATE: 20180710
